FAERS Safety Report 7124632-5 (Version None)
Quarter: 2010Q4

REPORT INFORMATION
  Report Type: 
  Country: None (occurrence: None)
  Receive Date: 20101122
  Receipt Date: 20101122
  Transmission Date: 20110411
  Serious: Yes (Hospitalization)
  Sender: FDA-Public Use
  Company Number: None

PATIENT
  Age: 33 Year
  Sex: Male

DRUGS (1)
  1. METRONIDAZOLE [Suspect]
     Indication: PSEUDOMEMBRANOUS COLITIS
     Dosage: 500 MG TID PO
     Route: 048

REACTIONS (2)
  - ABDOMINAL PAIN [None]
  - VERTIGO [None]
